FAERS Safety Report 6043857-3 (Version None)
Quarter: 2009Q1

REPORT INFORMATION
  Report Type: 
  Country: None (occurrence: None)
  Receive Date: 20090120
  Receipt Date: 20090112
  Transmission Date: 20090719
  Serious: Yes (Other)
  Sender: FDA-Public Use
  Company Number: CH-AMGEN-US316068

PATIENT
  Age: 46 Year
  Sex: Female

DRUGS (2)
  1. ENBREL [Suspect]
     Indication: DRUG USE FOR UNKNOWN INDICATION
     Dosage: 50 MG, FREQUENCY UNKNOWN
     Route: 058
     Dates: start: 20061101
  2. ENBREL [Suspect]
     Indication: OFF LABEL USE

REACTIONS (3)
  - PYODERMA GANGRENOSUM [None]
  - SKIN ULCER [None]
  - SUBCUTANEOUS ABSCESS [None]
